FAERS Safety Report 17163917 (Version 2)
Quarter: 2019Q4

REPORT INFORMATION
  Report Type: Spontaneous
  Country: US (occurrence: US)
  Receive Date: 20191217
  Receipt Date: 20191223
  Transmission Date: 20200122
  Serious: Yes (Hospitalization, Other)
  Sender: FDA-Public Use
  Company Number: US-SAOL THERAPEUTICS-2019SAO00498

PATIENT
  Age: 15 Year
  Sex: Male
  Weight: 28.12 kg

DRUGS (5)
  1. LIORESAL [Suspect]
     Active Substance: BACLOFEN
     Dosage: PUMP DOSE WAS REDUCED BY 2.5 %
     Route: 037
     Dates: start: 2019, end: 2019
  2. LIORESAL [Suspect]
     Active Substance: BACLOFEN
     Dosage: UNK; DOSE INCREAED BY 5%
     Route: 037
     Dates: start: 20191111, end: 2019
  3. LIORESAL [Suspect]
     Active Substance: BACLOFEN
     Indication: MUSCLE SPASTICITY
     Dosage: 1100 ?G, \DAY
     Route: 037
     Dates: start: 20191111, end: 20191111
  4. LIORESAL [Suspect]
     Active Substance: BACLOFEN
     Dosage: 1100.9 ?G, \DAY
     Route: 037
     Dates: start: 2019, end: 20191205
  5. LIORESAL [Suspect]
     Active Substance: BACLOFEN
     Dosage: 1129 ?G, \DAY
     Route: 037
     Dates: start: 20191205

REACTIONS (6)
  - Malignant melanoma [Unknown]
  - Somnolence [Recovered/Resolved]
  - Pruritus [Recovered/Resolved]
  - Respiratory arrest [Recovered/Resolved]
  - Loss of consciousness [Recovered/Resolved]
  - Unresponsive to stimuli [Recovered/Resolved]

NARRATIVE: CASE EVENT DATE: 201911
